FAERS Safety Report 23639905 (Version 2)
Quarter: 2024Q1

REPORT INFORMATION
  Report Type: Spontaneous
  Country: US (occurrence: US)
  Receive Date: 20240316
  Receipt Date: 20240322
  Transmission Date: 20240410
  Serious: Yes (Death)
  Sender: FDA-Public Use
  Company Number: US-JNJFOC-20240331169

PATIENT
  Age: 44 Year
  Sex: Male

DRUGS (3)
  1. SPRAVATO [Suspect]
     Active Substance: ESKETAMINE
     Indication: Depression
     Dosage: TREATMENT START DATE WAS IN 2024.
  2. SPRAVATO [Suspect]
     Active Substance: ESKETAMINE
     Dosage: FREQUENCY TIME WAS REPORTED AS WEEK.
     Dates: end: 20240220
  3. WELLBUTRIN [Concomitant]
     Active Substance: BUPROPION HYDROCHLORIDE
     Indication: Major depression
     Route: 048

REACTIONS (1)
  - Death [Fatal]
